FAERS Safety Report 21077754 (Version 1)
Quarter: 2022Q3

REPORT INFORMATION
  Report Type: Spontaneous
  Country: US (occurrence: US)
  Receive Date: 20220713
  Receipt Date: 20220713
  Transmission Date: 20221026
  Serious: No
  Sender: FDA-Public Use
  Company Number: US-PFIZER INC-PV202200021695

PATIENT
  Age: 66 Year
  Sex: Male

DRUGS (1)
  1. PREGABALIN [Suspect]
     Active Substance: PREGABALIN
     Dosage: TAKES THE MAXIMUM DOES A DAY, FOR 3 MONTHS

REACTIONS (2)
  - Fall [Unknown]
  - Limb discomfort [Unknown]
